FAERS Safety Report 7455946-7 (Version None)
Quarter: 2011Q2

REPORT INFORMATION
  Report Type: 
  Country: None (occurrence: None)
  Receive Date: 20110503
  Receipt Date: 20110429
  Transmission Date: 20111010
  Serious: Yes (Life-Threatening, Hospitalization, Other)
  Sender: FDA-Public Use
  Company Number: PHHY2011IE01791

PATIENT
  Age: 34 Year
  Sex: Male

DRUGS (8)
  1. ACETAMINOPHEN AND CODEINE PHOSPHATE [Suspect]
  2. TEMAZ [Suspect]
     Dosage: 120 MG
  3. AMLODIPINE [Suspect]
  4. ANTI-FREEZE [Concomitant]
     Dosage: 500 ML
  5. PERINDOPRIL [Suspect]
  6. DIAZEPAM [Suspect]
     Dosage: 140 MG
  7. CITALOPRAM [Suspect]
     Dosage: 240 MG
  8. DOXAZOSIN MESYLATE [Suspect]

REACTIONS (14)
  - HYPOTENSION [None]
  - LOSS OF CONSCIOUSNESS [None]
  - BLOOD CREATININE INCREASED [None]
  - COMA SCALE ABNORMAL [None]
  - CRYSTALLURIA [None]
  - BLOOD LACTIC ACID INCREASED [None]
  - HEART RATE INCREASED [None]
  - MULTIPLE DRUG OVERDOSE [None]
  - TOXICITY TO VARIOUS AGENTS [None]
  - METABOLIC ACIDOSIS [None]
  - HYPOXIA [None]
  - ANION GAP INCREASED [None]
  - OSMOLAR GAP ABNORMAL [None]
  - SUICIDE ATTEMPT [None]
